FAERS Safety Report 19110814 (Version 2)
Quarter: 2021Q2

REPORT INFORMATION
  Report Type: Spontaneous
  Country: US (occurrence: US)
  Receive Date: 20210408
  Receipt Date: 20210531
  Transmission Date: 20210717
  Serious: No
  Sender: FDA-Public Use
  Company Number: US-PFIZER INC-2021081051

PATIENT
  Age: 68 Year
  Sex: Female

DRUGS (1)
  1. IBRANCE [Suspect]
     Active Substance: PALBOCICLIB
     Indication: NEOPLASM MALIGNANT
     Dosage: 125 MG
     Dates: start: 2020

REACTIONS (11)
  - Bone pain [Unknown]
  - Pruritus [Unknown]
  - Hot flush [Unknown]
  - Lymphoedema [Unknown]
  - Hyperhidrosis [Unknown]
  - Fatigue [Unknown]
  - Pain in extremity [Unknown]
  - Memory impairment [Unknown]
  - Asthenia [Unknown]
  - Depressed mood [Unknown]
  - Dry skin [Unknown]
